FAERS Safety Report 12534671 (Version 1)
Quarter: 2016Q3

REPORT INFORMATION
  Report Type: Report from Study
  Country: BR (occurrence: BR)
  Receive Date: 20160706
  Receipt Date: 20160706
  Transmission Date: 20161109
  Serious: Yes (Other)
  Sender: FDA-Public Use
  Company Number: BR-BIOGEN-2016BI00260791

PATIENT
  Sex: Female

DRUGS (3)
  1. TECFIDERA [Suspect]
     Active Substance: DIMETHYL FUMARATE
     Dosage: 2 CAPSULES
     Route: 065
  2. TECFIDERA [Suspect]
     Active Substance: DIMETHYL FUMARATE
     Indication: MULTIPLE SCLEROSIS
     Dosage: 2 CAPSULES
     Route: 065
     Dates: start: 20151125
  3. TECFIDERA [Suspect]
     Active Substance: DIMETHYL FUMARATE
     Route: 065
     Dates: start: 20160124, end: 201602

REACTIONS (16)
  - Pain in extremity [Not Recovered/Not Resolved]
  - Insomnia [Unknown]
  - Intentional product misuse [Unknown]
  - Suicidal ideation [Unknown]
  - Limb injury [Unknown]
  - Muscle spasms [Unknown]
  - Stress [Unknown]
  - Hypoaesthesia [Unknown]
  - Induration [Not Recovered/Not Resolved]
  - Malaise [Unknown]
  - Abasia [Unknown]
  - Headache [Unknown]
  - Nervousness [Unknown]
  - Inner ear disorder [Unknown]
  - Confusional state [Unknown]
  - Impatience [Unknown]
